FAERS Safety Report 5032056-X (Version None)
Quarter: 2006Q2

REPORT INFORMATION
  Report Type: 
  Country: None (occurrence: None)
  Receive Date: 20060616
  Receipt Date: 20060605
  Transmission Date: 20061013
  Serious: Yes (Hospitalization, Other)
  Sender: FDA-Public Use
  Company Number: CHPA2006US05487

PATIENT
  Age: 53 Year
  Sex: Female

DRUGS (10)
  1. EX-LAX LAXATIVE UNKNOWN FORMULA (NCH) (UNKNOWN) [Suspect]
     Indication: CONSTIPATION
     Dosage: 2 TABS 3 TIMES PER WEEK
     Dates: start: 19750101, end: 19900101
  2. CORRECTOL [Suspect]
     Indication: CONSTIPATION
     Dosage: 2 TABLETS 3 TIMES PER WEEK
     Dates: start: 19910101, end: 20010101
  3. KONSYL (PSYLLIUM HYDROPHILIC MUCILLOID) [Suspect]
     Indication: CONSTIPATION
     Dosage: 6 GRAMS
     Dates: start: 20010101
  4. ASPIRIN [Concomitant]
  5. VITAMINS (NO INGREDIENTS/SUBSTANCES) [Concomitant]
  6. NORVASC [Concomitant]
  7. ARIMIDEX [Concomitant]
  8. DIOVAN [Concomitant]
  9. TOPROL XL (METROPROLOL SUCCINATE) [Concomitant]
  10. POTASSIUM SUPPLEMENTS (POTASSIUM) [Concomitant]

REACTIONS (21)
  - ABDOMINAL DISCOMFORT [None]
  - ABDOMINAL DISTENSION [None]
  - ABDOMINAL RIGIDITY [None]
  - BACK PAIN [None]
  - CHANGE OF BOWEL HABIT [None]
  - CONSTIPATION [None]
  - DIVERTICULUM [None]
  - DRUG ABUSER [None]
  - DYSPEPSIA [None]
  - FLATULENCE [None]
  - GASTRIC DISORDER [None]
  - GASTRITIS [None]
  - GASTROOESOPHAGEAL REFLUX DISEASE [None]
  - HYPOKALAEMIA [None]
  - ILEUS PARALYTIC [None]
  - MELANOSIS COLI [None]
  - MUSCLE SPASMS [None]
  - OCCULT BLOOD POSITIVE [None]
  - OESOPHAGITIS [None]
  - PANCREATITIS ACUTE [None]
  - RECTAL POLYP [None]
